FAERS Safety Report 23059098 (Version 5)
Quarter: 2023Q4

REPORT INFORMATION
  Report Type: Spontaneous
  Country: GR (occurrence: GR)
  Receive Date: 20231012
  Receipt Date: 20231117
  Transmission Date: 20240110
  Serious: No
  Sender: FDA-Public Use
  Company Number: GR-PFIZER INC-PV202300157824

PATIENT
  Age: 15 Year
  Sex: Male
  Weight: 62 kg

DRUGS (1)
  1. GENOTROPIN [Suspect]
     Active Substance: SOMATROPIN
     Indication: Growth hormone deficiency
     Dosage: WEEKLY WITH ONE DAY OFF
     Route: 058
     Dates: start: 202309

REACTIONS (9)
  - Administration site induration [Unknown]
  - Lack of injection site rotation [Unknown]
  - Product odour abnormal [Unknown]
  - Wrong technique in device usage process [Unknown]
  - Poor quality device used [Unknown]
  - Device leakage [Unknown]
  - Needle issue [Unknown]
  - Device difficult to use [Unknown]
  - Product prescribing error [Unknown]

NARRATIVE: CASE EVENT DATE: 20230901
